FAERS Safety Report 9094371 (Version 1)
Quarter: 2013Q1

REPORT INFORMATION
  Report Type: Spontaneous
  Country: US (occurrence: None)
  Receive Date: 20130215
  Receipt Date: 20130215
  Transmission Date: 20140127
  Serious: Yes (Disabling)
  Sender: FDA-Public Use
  Company Number: None

PATIENT
  Age: 66 Year
  Sex: Male
  Weight: 86.18 kg

DRUGS (1)
  1. ATORVASTATIN [Suspect]
     Indication: BLOOD CHOLESTEROL
     Dosage: 1
     Route: 048
     Dates: start: 201210, end: 20130104

REACTIONS (4)
  - Muscle injury [None]
  - Motor dysfunction [None]
  - Mobility decreased [None]
  - Muscle disorder [None]
